FAERS Safety Report 5907241-2 (Version None)
Quarter: 2008Q4

REPORT INFORMATION
  Report Type: 
  Country: None (occurrence: None)
  Receive Date: 20081003
  Receipt Date: 20080926
  Transmission Date: 20090506
  Serious: Yes (Other)
  Sender: FDA-Public Use
  Company Number: PHHY2008GB18899

PATIENT
  Sex: Female

DRUGS (2)
  1. TEGRETOL [Suspect]
     Dosage: 200MG IN THE MORNING + 300 MG IN EVENING
     Dates: start: 19920101
  2. TEGRETOL [Suspect]
     Dosage: 400 MG TWICE DAILY

REACTIONS (2)
  - CONVULSION [None]
  - EPILEPSY [None]
